FAERS Safety Report 10170758 (Version 2)
Quarter: 2014Q2

REPORT INFORMATION
  Report Type: Spontaneous
  Country: IT (occurrence: IT)
  Receive Date: 20140514
  Receipt Date: 20140527
  Transmission Date: 20141212
  Serious: Yes (Other)
  Sender: FDA-Public Use
  Company Number: IT-ACCORD-023593

PATIENT
  Age: 49 Year
  Sex: Male
  Weight: 104 kg

DRUGS (11)
  1. ZANTAC [Suspect]
     Indication: PREMEDICATION
     Dosage: MAH:GLAXOSMITHKLINE SPA
     Route: 042
     Dates: start: 20130822
  2. PLAVIX [Concomitant]
  3. GEMCITABINE/GEMCITABINE HYDROCHLORIDE [Suspect]
     Indication: PANCREATIC CARCINOMA
     Route: 042
     Dates: start: 20130822
  4. ZOPRANOL [Concomitant]
  5. NOVORAPID [Concomitant]
  6. EFIENT [Concomitant]
  7. CREON [Concomitant]
  8. LEVEMIR [Concomitant]
  9. DECADRON [Suspect]
     Indication: PREMEDICATION
     Dosage: MAH: FARMACEUTICI CABER SPA
     Route: 042
     Dates: start: 20130822
  10. PANTORC [Concomitant]
  11. CRESTOR [Concomitant]

REACTIONS (6)
  - Dizziness [Recovered/Resolved]
  - Nausea [Recovered/Resolved]
  - Loss of consciousness [Recovered/Resolved]
  - Thrombocytosis [Not Recovered/Not Resolved]
  - Headache [Unknown]
  - Generalised tonic-clonic seizure [Recovered/Resolved]
